FAERS Safety Report 23795661 (Version 1)
Quarter: 2024Q2

REPORT INFORMATION
  Report Type: Spontaneous
  Country: GB (occurrence: GB)
  Receive Date: 20240429
  Receipt Date: 20240429
  Transmission Date: 20240715
  Serious: Yes (Other)
  Sender: FDA-Public Use
  Company Number: GB-AMERICAN REGENT INC-2024001530

PATIENT
  Age: 33 Year
  Sex: Male
  Weight: 95 kg

DRUGS (2)
  1. FERINJECT [Suspect]
     Active Substance: FERRIC CARBOXYMALTOSE
     Indication: Adverse drug reaction
     Dosage: 1000 AND 500 MG INFUSION MONTHLY (1 IN 1 M)
     Dates: start: 2020
  2. FERINJECT [Suspect]
     Active Substance: FERRIC CARBOXYMALTOSE
     Indication: Iron deficiency anaemia

REACTIONS (3)
  - Muscle spasms [Unknown]
  - Hypophosphataemia [Unknown]
  - Off label use [Unknown]

NARRATIVE: CASE EVENT DATE: 20200101
